FAERS Safety Report 4940233-9 (Version None)
Quarter: 2006Q1

REPORT INFORMATION
  Report Type: 
  Country: None (occurrence: None)
  Receive Date: 20060310
  Receipt Date: 20050907
  Transmission Date: 20060701
  Serious: Yes (Hospitalization)
  Sender: FDA-Public Use
  Company Number: US-MERCK-0509USA00790

PATIENT
  Age: 59 Year
  Sex: Female
  Weight: 89 kg

DRUGS (4)
  1. VIOXX [Suspect]
     Indication: ARTHRITIS
     Route: 048
     Dates: start: 19991101, end: 20010824
  2. VIOXX [Suspect]
     Route: 048
     Dates: start: 19991101, end: 20010824
  3. VIOXX [Suspect]
     Indication: OSTEOARTHRITIS
     Route: 048
     Dates: start: 19991101, end: 20010824
  4. VIOXX [Suspect]
     Route: 048
     Dates: start: 19991101, end: 20010824

REACTIONS (16)
  - BRONCHITIS [None]
  - CARDIAC DISORDER [None]
  - CARDIAC FAILURE [None]
  - CARDIAC FAILURE CONGESTIVE [None]
  - CEREBROVASCULAR ACCIDENT [None]
  - CHEST PAIN [None]
  - CORONARY ARTERY DISEASE [None]
  - DYSLIPIDAEMIA [None]
  - DYSPNOEA [None]
  - HYPERTENSION [None]
  - KNEE OPERATION [None]
  - LIVER DISORDER [None]
  - NAUSEA [None]
  - PNEUMONIA [None]
  - VISUAL DISTURBANCE [None]
  - VOMITING [None]
